FAERS Safety Report 10040317 (Version 3)
Quarter: 2014Q2

REPORT INFORMATION
  Report Type: Spontaneous
  Country: JP (occurrence: JP)
  Receive Date: 20140327
  Receipt Date: 20140606
  Transmission Date: 20141212
  Serious: Yes (Life-Threatening, Hospitalization, Other)
  Sender: FDA-Public Use
  Company Number: JP-B.I. PHARMACEUTICALS,INC./RIDGEFIELD-2014-BI-13100NB

PATIENT
  Age: 87 Year
  Sex: Male
  Weight: 59 kg

DRUGS (9)
  1. PRAZAXA [Suspect]
     Indication: ATRIAL FIBRILLATION
     Dosage: 220 MG
     Route: 048
     Dates: start: 20130110, end: 20140313
  2. PLETAAL OD [Concomitant]
     Dosage: 200 MG
     Route: 048
  3. TAKEPRON [Concomitant]
     Dosage: 15 MG
     Route: 048
  4. REBAMIPIDE [Concomitant]
     Dosage: 300 MG
     Route: 048
  5. ADALAT-CR [Concomitant]
     Dosage: 20 MG
     Route: 048
  6. BAYASPIRIN [Concomitant]
     Route: 048
     Dates: start: 20140111
  7. PLAVIX [Concomitant]
     Route: 048
     Dates: start: 20140111
  8. CRESTOR [Concomitant]
     Route: 048
     Dates: start: 20140111
  9. DIOVAN [Concomitant]
     Dosage: 80 MG
     Route: 048
     Dates: start: 20140111

REACTIONS (3)
  - Acute respiratory distress syndrome [Recovered/Resolved]
  - Acute myocardial infarction [Unknown]
  - Interstitial lung disease [Unknown]
